FAERS Safety Report 12449122 (Version 2)
Quarter: 2016Q2

REPORT INFORMATION
  Report Type: Report from Study
  Country: TR (occurrence: TR)
  Receive Date: 20160608
  Receipt Date: 20160624
  Transmission Date: 20160815
  Serious: Yes (Death, Hospitalization)
  Sender: FDA-Public Use
  Company Number: TR-ROCHE-1771333

PATIENT

DRUGS (2)
  1. ALTEPLASE [Suspect]
     Active Substance: ALTEPLASE
     Indication: PULMONARY EMBOLISM
     Route: 042
  2. HEPARIN [Concomitant]
     Active Substance: HEPARIN SODIUM
     Dosage: PATIENT RECEIVED UNFRACTIONATED HEPARIN USING STANDARD WEIGHT-BASED ALOGORITHM AND DOSES WERE ADJUST
     Route: 065

REACTIONS (2)
  - Chemical poisoning [Fatal]
  - Hepatic failure [Fatal]
